FAERS Safety Report 15500865 (Version 2)
Quarter: 2019Q1

REPORT INFORMATION
  Report Type: Report from Study
  Country: US (occurrence: US)
  Receive Date: 20181015
  Receipt Date: 20190312
  Transmission Date: 20190417
  Serious: Yes (Hospitalization)
  Sender: FDA-Public Use
  Company Number: PHEH2018US041219

PATIENT
  Sex: Male

DRUGS (1)
  1. ENTRESTO [Suspect]
     Active Substance: SACUBITRIL\VALSARTAN
     Indication: PRODUCT USED FOR UNKNOWN INDICATION
     Dosage: UNK
     Route: 048

REACTIONS (11)
  - Dizziness [Unknown]
  - Weight fluctuation [Unknown]
  - Asthenia [Unknown]
  - Hyperhidrosis [Unknown]
  - Gastric haemorrhage [Unknown]
  - Arrhythmia [Unknown]
  - Hypotension [Unknown]
  - Sinusitis [Unknown]
  - Oesophageal injury [Unknown]
  - Dizziness postural [Unknown]
  - Cough [Unknown]
